FAERS Safety Report 5495022-6 (Version None)
Quarter: 2007Q4

REPORT INFORMATION
  Report Type: 
  Country: None (occurrence: None)
  Receive Date: 20071024
  Receipt Date: 20071010
  Transmission Date: 20080405
  Serious: Yes (Death, Hospitalization)
  Sender: FDA-Public Use
  Company Number: CA-SHR-CA-SHR-03-003710

PATIENT
  Age: 53 Year
  Sex: Female
  Weight: 45.351 kg

DRUGS (10)
  1. BETASERON [Suspect]
     Indication: MULTIPLE SCLEROSIS
     Dosage: 8 MIU, EVERY 2D
     Route: 058
     Dates: start: 19991118, end: 20030219
  2. BETASERON [Suspect]
     Dosage: 4 MIU, EVERY 2D
     Route: 058
     Dates: start: 20030228, end: 20030310
  3. CELEXA [Concomitant]
     Dates: end: 20030310
  4. CYCLOBENZAPRINE HCL [Concomitant]
     Dates: end: 20030310
  5. DULCOLAX [Concomitant]
     Dates: end: 20030310
  6. FUROSEMIDE [Concomitant]
     Dates: end: 20030310
  7. K-DUR 10 [Concomitant]
     Dates: end: 20030310
  8. OXAZEPAM [Concomitant]
     Dates: end: 20030310
  9. PANTOLOC ^SOLVAY^ [Concomitant]
     Dates: end: 20030310
  10. VITAMINS NOS [Concomitant]
     Dates: end: 20030310

REACTIONS (13)
  - ANOREXIA [None]
  - ASTHENIA [None]
  - COUGH [None]
  - DEATH [None]
  - DECUBITUS ULCER [None]
  - DYSPNOEA [None]
  - FATIGUE [None]
  - PNEUMONIA [None]
  - PRODUCTIVE COUGH [None]
  - PYREXIA [None]
  - SKIN ULCER [None]
  - URINARY TRACT INFECTION [None]
  - WEIGHT DECREASED [None]
